FAERS Safety Report 6574009-6 (Version None)
Quarter: 2010Q1

REPORT INFORMATION
  Report Type: 
  Country: None (occurrence: None)
  Receive Date: 20100208
  Receipt Date: 20100201
  Transmission Date: 20100710
  Serious: Yes (Other)
  Sender: FDA-Public Use
  Company Number: US-JNJFOC-20100201843

PATIENT
  Sex: Male

DRUGS (4)
  1. CONCERTA [Suspect]
     Indication: ATTENTION DEFICIT/HYPERACTIVITY DISORDER
     Route: 048
  2. CONCERTA [Suspect]
     Route: 048
  3. CONCERTA [Suspect]
     Route: 048
  4. CONCERTA [Suspect]
     Route: 048

REACTIONS (9)
  - BLUNTED AFFECT [None]
  - DECREASED APPETITE [None]
  - EYE ROLLING [None]
  - GRUNTING [None]
  - INSOMNIA [None]
  - SOCIAL AVOIDANT BEHAVIOUR [None]
  - SPEECH DISORDER [None]
  - TIC [None]
  - WEIGHT DECREASED [None]
